FAERS Safety Report 10228162 (Version 1)
Quarter: 2014Q2

REPORT INFORMATION
  Report Type: Spontaneous
  Country: US (occurrence: None)
  Receive Date: 20140505
  Receipt Date: 20140505
  Transmission Date: 20141212
  Serious: No
  Sender: FDA-Public Use
  Company Number: US-014469

PATIENT
  Age: 63 Year
  Sex: Female

DRUGS (6)
  1. PICO-SALAX [Suspect]
     Indication: BOWEL PREPARATION
     Dosage: (AS DIRECTED ON PRESCRIPTION LABEL ORAL)
     Route: 048
     Dates: end: 20140110
  2. FISH OIL [Concomitant]
  3. CALCIUM + VITAMIN D /01483701/ [Concomitant]
  4. VENLAFAXINE [Concomitant]
  5. NORVASC [Concomitant]
  6. VITAMIN D3 [Concomitant]

REACTIONS (1)
  - Drug ineffective [None]
